FAERS Safety Report 15068894 (Version 1)
Quarter: 2018Q2

REPORT INFORMATION
  Report Type: Spontaneous
  Country: AU (occurrence: AU)
  Receive Date: 20180626
  Receipt Date: 20180626
  Transmission Date: 20180711
  Serious: Yes (Other)
  Sender: FDA-Public Use
  Company Number: AU-ASTRAZENECA-2018SE81526

PATIENT
  Age: 57 Year
  Sex: Female

DRUGS (2)
  1. OSIMERTINIB. [Suspect]
     Active Substance: OSIMERTINIB
     Dosage: 80.0MG UNKNOWN
     Route: 048
     Dates: start: 20170601
  2. GEFITINIB. [Suspect]
     Active Substance: GEFITINIB
     Dosage: DAILY
     Route: 048
     Dates: start: 201701

REACTIONS (9)
  - Rash [Unknown]
  - Ocular hyperaemia [Unknown]
  - Malignant neoplasm progression [Unknown]
  - Pleural effusion [Recovered/Resolved]
  - Mouth ulceration [Unknown]
  - Dry eye [Unknown]
  - Hepatic steatosis [Unknown]
  - Onychoclasis [Unknown]
  - Dyspnoea exertional [Unknown]

NARRATIVE: CASE EVENT DATE: 201704
